FAERS Safety Report 24006936 (Version 3)
Quarter: 2024Q3

REPORT INFORMATION
  Report Type: Report from Study
  Country: US (occurrence: US)
  Receive Date: 20240624
  Receipt Date: 20240730
  Transmission Date: 20241016
  Serious: No
  Sender: MERCK
  Company Number: US-009507513-2405USA008150

PATIENT
  Sex: Female

DRUGS (6)
  1. SOTATERCEPT [Suspect]
     Active Substance: SOTATERCEPT
     Indication: Pulmonary arterial hypertension
     Dosage: 0.4 ML EVERY 3 WEEKS, STRENGTH: 45 MG
     Route: 058
     Dates: start: 20240523
  2. SOTATERCEPT [Suspect]
     Active Substance: SOTATERCEPT
     Dosage: 0.8 ML, Q3W; STRENGTH: 45 MG
     Route: 058
     Dates: start: 202405
  3. TADALAFIL [Concomitant]
     Active Substance: TADALAFIL
     Dosage: UNK
  4. TYVASO DPI [Concomitant]
     Active Substance: TREPROSTINIL
     Dosage: UNK
  5. LETAIRIS [Concomitant]
     Active Substance: AMBRISENTAN
     Dosage: UNK
  6. AMBRISENTAN [Concomitant]
     Active Substance: AMBRISENTAN

REACTIONS (5)
  - Epistaxis [Recovered/Resolved]
  - Product distribution issue [Unknown]
  - Product physical issue [Unknown]
  - Product storage error [Unknown]
  - Inappropriate schedule of product administration [Unknown]

NARRATIVE: CASE EVENT DATE: 20240101
